FAERS Safety Report 10238988 (Version 1)
Quarter: 2014Q1

REPORT INFORMATION
  Report Type: Spontaneous
  Country: US (occurrence: None)
  Receive Date: 20140306
  Receipt Date: 20140306
  Transmission Date: 20141002
  Serious: Yes (Disabling, Other)
  Sender: FDA-Public Use
  Company Number: 163-21880-13040816

PATIENT
  Age: 82 Year
  Sex: Female

DRUGS (20)
  1. REVLIMID [Suspect]
     Indication: PLASMA CELL MYELOMA
     Dosage: 10 MG, 21 IN 28 D, PO
     Route: 048
     Dates: start: 20120724, end: 20120905
  2. ARANESP (DARBEPOETIN ALFA) (INJECTION) [Concomitant]
  3. PROZAC (FLUOXETINE HYDROCHLORIDE) [Concomitant]
  4. PROMETHAZINE HCL (PROMETHAZINE HYDROCHLORIDE) (TABLETS) [Concomitant]
  5. COMBIVENT (COMBIVENT) (AEROSOL FOR INHALATION) [Concomitant]
  6. FLOVENT HFA (FLUTICASONE PROPIONATE) (SEROSOL FOR INHALATION) [Concomitant]
  7. ALLOPURINOL (ALLOPURINOL) (TABLETS) [Concomitant]
  8. BENADRYL (DIPHENHYDRAMINE HYDROCHLORIDE) (TABLETS) [Concomitant]
  9. MECLIZINE HCL (MECLOZINE HYDROCHLORIDE) (TABLETS) [Concomitant]
  10. FUROSEMIDE (FUROSEMIDE) (TABLETS) [Concomitant]
  11. TEMAZEPAM (TEMAZEPAM) (CAPSULES) [Concomitant]
  12. LIDOCAINE-PRILOCAINE (EMLA) (CREAM) [Concomitant]
  13. ONDANSETRON HCL (ONDANSETRON HYDROCHLORIDE) (TABLETS) [Concomitant]
  14. HYDROCODONE/ACETAMINOPHEN (REMEDEINE) (TABLETS) [Concomitant]
  15. POTASSIUM CHLORIDE (POTASSIUM CHLORIDE) (TABLETS) [Concomitant]
  16. PRILOSEC OTC (OMEPRAZOLE) (TABLETS) [Concomitant]
  17. WARFARIN SODIUM (WARFARIN SODIUM) (TABLETS) [Concomitant]
  18. LEVOTHYROXINE SODIUM (LEVOTHYROXINE SODIUM) (TABLETS) [Concomitant]
  19. BLOOD THINNER (ANTITHROMBOTIC AGENTS) (UNKNOWN) [Concomitant]
  20. PROAIR (FLUTICASONE PROPIONTAE) (AEROSOL FOR INHALATION) [Concomitant]

REACTIONS (3)
  - Nausea [None]
  - Vomiting [None]
  - Weight decreased [None]
